FAERS Safety Report 6375914-6 (Version None)
Quarter: 2009Q3

REPORT INFORMATION
  Report Type: 
  Country: None (occurrence: None)
  Receive Date: 20090917
  Receipt Date: 20090904
  Transmission Date: 20100115
  Serious: Yes (Other)
  Sender: FDA-Public Use
  Company Number: ADR17732009

PATIENT
  Sex: Female

DRUGS (2)
  1. CITALOPRAM HYDROBROMIDE [Suspect]
  2. SEROXAT (PAROXETINE) [Concomitant]

REACTIONS (9)
  - APATHY [None]
  - APPETITE DISORDER [None]
  - DRUG WITHDRAWAL SYNDROME [None]
  - EMOTIONAL DISTRESS [None]
  - IRRITABILITY [None]
  - OVERDOSE [None]
  - SUICIDE ATTEMPT [None]
  - TEARFULNESS [None]
  - WEIGHT FLUCTUATION [None]
